FAERS Safety Report 5584299-4 (Version None)
Quarter: 2008Q1

REPORT INFORMATION
  Report Type: 
  Country: None (occurrence: None)
  Receive Date: 20080108
  Receipt Date: 20080104
  Transmission Date: 20080703
  Serious: Yes (Other)
  Sender: FDA-Public Use
  Company Number: D0055656A

PATIENT
  Sex: Female

DRUGS (2)
  1. ELONTRIL [Suspect]
     Route: 048
     Dates: start: 20071229
  2. METOPROLOL TARTRATE [Suspect]
     Route: 048

REACTIONS (1)
  - THROMBOCYTOPENIA [None]
